FAERS Safety Report 25925266 (Version 1)
Quarter: 2025Q4

REPORT INFORMATION
  Report Type: Spontaneous
  Country: US (occurrence: None)
  Receive Date: 20251013
  Receipt Date: 20251013
  Transmission Date: 20260118
  Serious: Yes (unspecified)
  Sender: FDA-CTU
  Company Number: None

PATIENT
  Age: 52 Year
  Sex: Male
  Weight: 70 kg

DRUGS (1)
  1. TALVEY [Suspect]
     Active Substance: TALQUETAMAB-TGVS

REACTIONS (2)
  - Acute respiratory failure [None]
  - Cytokine release syndrome [None]

NARRATIVE: CASE EVENT DATE: 20251011
